FAERS Safety Report 4966601-7 (Version None)
Quarter: 2006Q2

REPORT INFORMATION
  Report Type: 
  Country: None (occurrence: None)
  Receive Date: 20060407
  Receipt Date: 20060331
  Transmission Date: 20061013
  Serious: Yes (Death, Hospitalization)
  Sender: FDA-Public Use
  Company Number: NL-AVENTIS-200611986EU

PATIENT
  Age: 77 Year
  Sex: Female

DRUGS (7)
  1. FUROSEMIDE [Suspect]
     Indication: HYPERTENSION
     Route: 048
  2. SOTALOL HCL [Suspect]
     Indication: ATRIAL FIBRILLATION
     Dates: start: 20010101
  3. AMILORIDE HCL [Concomitant]
  4. HYDROCHLOROTHIAZIDE [Concomitant]
  5. ACETYLSALICYLIC ACID SRT [Concomitant]
  6. PAROXETINE HCL [Concomitant]
  7. COTRIM [Concomitant]
     Indication: PYREXIA

REACTIONS (13)
  - ARRHYTHMIA [None]
  - ATRIAL FIBRILLATION [None]
  - BLOOD PRESSURE DECREASED [None]
  - CARDIAC ASTHMA [None]
  - DEHYDRATION [None]
  - DIZZINESS [None]
  - ELECTROCARDIOGRAM QT PROLONGED [None]
  - FALL [None]
  - FATIGUE [None]
  - HIP FRACTURE [None]
  - HYPOKALAEMIA [None]
  - OSTEOARTHRITIS [None]
  - SINUS BRADYCARDIA [None]
